FAERS Safety Report 4315325-8 (Version None)
Quarter: 2004Q1

REPORT INFORMATION
  Report Type: 
  Country: None (occurrence: None)
  Receive Date: 20040310
  Receipt Date: 20040310
  Transmission Date: 20041129
  Serious: Yes (Other)
  Sender: FDA-Public Use
  Company Number: None

PATIENT
  Sex: Male
  Weight: 41.7309 kg

DRUGS (3)
  1. ADDERALL GENERIC AND BRAND NAME [Suspect]
     Indication: ATTENTION DEFICIT/HYPERACTIVITY DISORDER
     Dosage: 5 MG INCREASED TO 20
     Dates: start: 20020401, end: 20020701
  2. CONCERTA [Suspect]
     Dosage: 18 INCREASING TO 54
     Dates: start: 20020801, end: 20021201
  3. STRATTERA [Suspect]

REACTIONS (2)
  - DRUG INEFFECTIVE [None]
  - PHARMACEUTICAL PRODUCT COMPLAINT [None]
